FAERS Safety Report 4894261-2 (Version None)
Quarter: 2006Q1

REPORT INFORMATION
  Report Type: 
  Country: None (occurrence: None)
  Receive Date: 20060127
  Receipt Date: 20051130
  Transmission Date: 20060701
  Serious: No
  Sender: FDA-Public Use
  Company Number: US-GLAXOSMITHKLINE-A0584101A

PATIENT
  Sex: Female

DRUGS (3)
  1. WELLBUTRIN [Suspect]
     Indication: DEPRESSION
     Route: 048
     Dates: end: 20051129
  2. LOPRESSOR [Concomitant]
  3. PRILOSEC [Concomitant]

REACTIONS (2)
  - HOT FLUSH [None]
  - MOUTH ULCERATION [None]
